FAERS Safety Report 6859297-0 (Version None)
Quarter: 2010Q3

REPORT INFORMATION
  Report Type: 
  Country: None (occurrence: None)
  Receive Date: 20100716
  Receipt Date: 20100712
  Transmission Date: 20110219
  Serious: Yes (Other)
  Sender: FDA-Public Use
  Company Number: VANT20100061

PATIENT
  Age: 79 Year
  Sex: Male
  Weight: 72.5755 kg

DRUGS (1)
  1. VANTAS [Suspect]
     Indication: PROSTATE CANCER
     Dosage: 1 IN 1 Y, SUB Q. IMPLANT
     Dates: start: 20100623, end: 20100625

REACTIONS (4)
  - DEVICE EXPULSION [None]
  - DEVICE EXTRUSION [None]
  - IMPLANT SITE DISCHARGE [None]
  - INFECTION [None]
